FAERS Safety Report 7896487-2 (Version None)
Quarter: 2011Q4

REPORT INFORMATION
  Report Type: 
  Country: None (occurrence: None)
  Receive Date: 20111106
  Receipt Date: 20110909
  Transmission Date: 20120403
  Serious: No
  Sender: FDA-Public Use
  Company Number: US-AMGEN-USASP2011046452

PATIENT
  Age: 68 Year
  Sex: Female

DRUGS (3)
  1. ENBREL [Suspect]
     Indication: PSORIASIS
     Dosage: 50 MG, QWK
     Dates: start: 20110328
  2. ENBREL [Suspect]
     Indication: PSORIATIC ARTHROPATHY
  3. WELLBUTRIN [Concomitant]

REACTIONS (2)
  - PSORIASIS [None]
  - PRURITUS [None]
